FAERS Safety Report 20756026 (Version 1)
Quarter: 2022Q2

REPORT INFORMATION
  Report Type: Report from Study
  Country: CA (occurrence: CA)
  Receive Date: 20220427
  Receipt Date: 20220427
  Transmission Date: 20220721
  Serious: Yes (Other)
  Sender: FDA-Public Use
  Company Number: CA-HLS-202200827

PATIENT
  Sex: Female

DRUGS (1)
  1. CLOZARIL [Suspect]
     Active Substance: CLOZAPINE
     Indication: Product used for unknown indication
     Route: 048
     Dates: start: 20220118

REACTIONS (5)
  - Crying [Unknown]
  - Poor venous access [Unknown]
  - Delusional disorder, persecutory type [Unknown]
  - Fear [Unknown]
  - Venous injury [Unknown]
